FAERS Safety Report 6870269-2 (Version None)
Quarter: 2010Q3

REPORT INFORMATION
  Report Type: 
  Country: None (occurrence: None)
  Receive Date: 20100723
  Receipt Date: 20100715
  Transmission Date: 20110219
  Serious: Yes (Hospitalization)
  Sender: FDA-Public Use
  Company Number: US-BIOGENIDEC-2010BI016929

PATIENT
  Age: 48 Year
  Sex: Male
  Weight: 56 kg

DRUGS (12)
  1. TYSABRI [Suspect]
     Indication: MULTIPLE SCLEROSIS
     Route: 042
     Dates: start: 20100118
  2. CRESTOR [Concomitant]
     Indication: BLOOD CHOLESTEROL INCREASED
     Dates: start: 20000101
  3. LISINOPRIL [Concomitant]
     Indication: HYPERTENSION
     Dates: start: 20000101
  4. BACLOFEN [Concomitant]
     Indication: MUSCLE SPASTICITY
     Dates: start: 20050101
  5. VALIUM [Concomitant]
     Indication: PAIN
     Dates: start: 20080101
  6. OXYCODONE [Concomitant]
     Indication: BACK PAIN
     Dates: start: 20080101
  7. OXYCODONE [Concomitant]
     Indication: PAIN IN EXTREMITY
     Dates: start: 20080101
  8. FENTANYL [Concomitant]
     Indication: BACK PAIN
     Dates: start: 20100101
  9. FENTANYL [Concomitant]
     Indication: PAIN IN EXTREMITY
     Dates: start: 20100101
  10. SENNA [Concomitant]
     Indication: CONSTIPATION
  11. TYLENOL PM [Concomitant]
     Indication: PAIN
  12. LIDODERM [Concomitant]
     Indication: PAIN
     Route: 062

REACTIONS (4)
  - ASTHENIA [None]
  - BLOOD PRESSURE DECREASED [None]
  - DEAFNESS [None]
  - ESCHERICHIA URINARY TRACT INFECTION [None]
